FAERS Safety Report 5441755-7 (Version None)
Quarter: 2007Q3

REPORT INFORMATION
  Report Type: 
  Country: None (occurrence: None)
  Receive Date: 20070829
  Receipt Date: 20070829
  Transmission Date: 20080115
  Serious: Yes (Hospitalization)
  Sender: FDA-Public Use
  Company Number: None

PATIENT
  Age: 76 Year
  Sex: Male

DRUGS (3)
  1. WARFARIN SODIUM [Suspect]
     Indication: ATRIAL FIBRILLATION
     Dosage: 5MG EVERY DAY PO
     Route: 048
     Dates: start: 20060922
  2. WARFARIN SODIUM [Suspect]
     Indication: CARDIOMYOPATHY
     Dosage: 5MG EVERY DAY PO
     Route: 048
     Dates: start: 20060922
  3. CEPHALEXIN [Suspect]
     Indication: URINARY TRACT INFECTION
     Dosage: 500MG OTHER PO
     Route: 048
     Dates: start: 20070816, end: 20070825

REACTIONS (4)
  - DRUG TOXICITY [None]
  - INTERNATIONAL NORMALISED RATIO INCREASED [None]
  - KLEBSIELLA INFECTION [None]
  - URINARY TRACT INFECTION [None]
